FAERS Safety Report 6179629-9 (Version None)
Quarter: 2009Q2

REPORT INFORMATION
  Report Type: 
  Country: None (occurrence: None)
  Receive Date: 20090505
  Receipt Date: 20090424
  Transmission Date: 20091009
  Serious: Yes (Hospitalization, Other)
  Sender: FDA-Public Use
  Company Number: US-MERCK-0901USA00892

PATIENT
  Age: 64 Year
  Sex: Female

DRUGS (4)
  1. FOSAMAX [Suspect]
     Indication: OSTEOPENIA
     Route: 048
     Dates: start: 20030101, end: 20080301
  2. HORMONES (UNSPECIFIED) [Concomitant]
     Route: 065
     Dates: start: 19800101, end: 20060101
  3. HYDRALAZINE [Concomitant]
     Route: 065
  4. DILTIAZEM HYDROCHLORIDE [Concomitant]
     Route: 065

REACTIONS (10)
  - BACK DISORDER [None]
  - EXOSTOSIS [None]
  - GINGIVAL BLEEDING [None]
  - GINGIVAL DISORDER [None]
  - ORAL INFECTION [None]
  - OROPHARYNGEAL PLAQUE [None]
  - OSTEOMYELITIS [None]
  - OSTEONECROSIS [None]
  - PERIODONTAL DISEASE [None]
  - TREATMENT FAILURE [None]
